FAERS Safety Report 9286678 (Version 2)
Quarter: 2013Q4

REPORT INFORMATION
  Report Type: Spontaneous
  Country: US (occurrence: US)
  Receive Date: 20130513
  Receipt Date: 20131024
  Transmission Date: 20140711
  Serious: Yes (Death, Hospitalization)
  Sender: FDA-Public Use
  Company Number: US-B.I. PHARMACEUTICALS,INC./RIDGEFIELD-2013-BI-13187BP

PATIENT
  Sex: Female
  Weight: 53.52 kg

DRUGS (17)
  1. PRADAXA [Suspect]
     Indication: ATRIAL FIBRILLATION
     Dosage: 150 MG
     Route: 048
     Dates: start: 20111208, end: 20120228
  2. ASPIRIN [Concomitant]
     Dosage: 81 MG
     Route: 048
  3. OS CAL 500+D [Concomitant]
     Route: 048
  4. COREG [Concomitant]
     Dosage: 6.25 MG
     Route: 048
  5. CARDIZEM [Concomitant]
     Dosage: 120 MG
     Route: 048
  6. ERGOCALCIFEROL [Concomitant]
  7. TRICOR [Concomitant]
     Dosage: 145 MG
     Route: 048
  8. DIFLUCAN [Concomitant]
     Dosage: 1 MG
     Route: 048
  9. FOLVITE [Concomitant]
     Dosage: 1 MG
     Route: 048
  10. VICODIN [Concomitant]
  11. MAG-OX [Concomitant]
     Dosage: 400 MG
     Route: 048
  12. CENTRUM SILVER [Concomitant]
     Route: 048
  13. PROTONIX [Concomitant]
     Dosage: 40 MG
     Route: 048
  14. PAXIL [Concomitant]
     Dosage: 40 MG
     Route: 048
  15. ZOCOR [Concomitant]
     Dosage: 40 MG
     Route: 048
  16. JANUVIA [Concomitant]
     Dosage: 50 MG
     Route: 048
  17. PLAVIX [Concomitant]

REACTIONS (7)
  - Cardio-respiratory arrest [Fatal]
  - Anaemia [Fatal]
  - Gastrointestinal haemorrhage [Fatal]
  - Mental status changes [Recovered/Resolved]
  - Cardiac failure [Unknown]
  - Pleural effusion [Unknown]
  - Renal failure acute [Unknown]
